FAERS Safety Report 6255687-8 (Version None)
Quarter: 2009Q2

REPORT INFORMATION
  Report Type: 
  Country: None (occurrence: None)
  Receive Date: 20090622
  Receipt Date: 20090610
  Transmission Date: 20091009
  Serious: Yes (Death, Other)
  Sender: FDA-Public Use
  Company Number: AECAN200900178

PATIENT
  Age: 52 Year
  Sex: Male
  Weight: 70 kg

DRUGS (4)
  1. GAMUNEX [Suspect]
     Indication: PARANEOPLASTIC SYNDROME
     Dosage: 80 GM;1X; IV
     Route: 042
     Dates: start: 20090606, end: 20090606
  2. GAMUNEX [Suspect]
     Indication: STATUS EPILEPTICUS
     Dosage: 80 GM;1X; IV
     Route: 042
     Dates: start: 20090606, end: 20090606
  3. IMMUNE GLOBULIN INTRAVENOUS (HUMAN) [Suspect]
     Indication: PARANEOPLASTIC SYNDROME
     Dosage: 80 GM; 1X; IV
     Route: 042
     Dates: start: 20090607, end: 20090607
  4. IMMUNE GLOBULIN INTRAVENOUS (HUMAN) [Suspect]
     Indication: STATUS EPILEPTICUS
     Dosage: 80 GM; 1X; IV
     Route: 042
     Dates: start: 20090607, end: 20090607

REACTIONS (7)
  - BLOOD DISORDER [None]
  - BONE MARROW DISORDER [None]
  - BRAIN INJURY [None]
  - GASTROINTESTINAL HAEMORRHAGE [None]
  - HAEMATOTOXICITY [None]
  - HAEMOLYSIS [None]
  - INFECTION [None]
